FAERS Safety Report 13351934 (Version 1)
Quarter: 2017Q1

REPORT INFORMATION
  Report Type: Spontaneous
  Country: US (occurrence: US)
  Receive Date: 20170320
  Receipt Date: 20170320
  Transmission Date: 20170429
  Serious: No
  Sender: FDA-Public Use
  Company Number: US-SA-2016SA192860

PATIENT
  Age: 52 Year
  Sex: Female

DRUGS (1)
  1. NASACORT ALLERGY 24HR [Suspect]
     Active Substance: TRIAMCINOLONE ACETONIDE
     Indication: MULTIPLE ALLERGIES
     Dosage: SHE INFORMED  THAT SHE ONLY USED TWO SQUIRTS IN EACH NOSTRIL
     Route: 045
     Dates: start: 20161016, end: 20161016

REACTIONS (7)
  - Palpitations [Unknown]
  - Dyspepsia [Unknown]
  - Headache [Unknown]
  - Abdominal discomfort [Unknown]
  - Miosis [Unknown]
  - Feeling abnormal [Unknown]
  - Abnormal dreams [Unknown]
